FAERS Safety Report 6766098-0 (Version None)
Quarter: 2010Q2

REPORT INFORMATION
  Report Type: 
  Country: None (occurrence: None)
  Receive Date: 20100611
  Receipt Date: 20100603
  Transmission Date: 20101027
  Serious: Yes (Hospitalization)
  Sender: FDA-Public Use
  Company Number: US-SANOFI-AVENTIS-2010SA031893

PATIENT
  Age: 60 Year
  Sex: Female
  Weight: 76 kg

DRUGS (7)
  1. AFLIBERCEPT [Suspect]
     Indication: OVARIAN EPITHELIAL CANCER
     Route: 042
     Dates: start: 20090806, end: 20090806
  2. AFLIBERCEPT [Suspect]
     Route: 042
     Dates: start: 20091231, end: 20091231
  3. DOCETAXEL [Suspect]
     Indication: OVARIAN EPITHELIAL CANCER
     Route: 042
     Dates: start: 20090806, end: 20090806
  4. DOCETAXEL [Suspect]
     Route: 042
     Dates: start: 20091231, end: 20091231
  5. FRAGMIN /SWE/ [Concomitant]
  6. TOPROL-XL [Concomitant]
  7. VICODIN [Concomitant]

REACTIONS (2)
  - ENTEROCUTANEOUS FISTULA [None]
  - INFECTION [None]
